FAERS Safety Report 5968693-5 (Version None)
Quarter: 2008Q4

REPORT INFORMATION
  Report Type: 
  Country: None (occurrence: None)
  Receive Date: 20081126
  Receipt Date: 20081117
  Transmission Date: 20090506
  Serious: Yes (Life-Threatening, Hospitalization, Other)
  Sender: FDA-Public Use
  Company Number: US-BAYER-200838796NA

PATIENT
  Age: 66 Year
  Sex: Male
  Weight: 93 kg

DRUGS (4)
  1. MAGNEVIST [Suspect]
     Indication: NUCLEAR MAGNETIC RESONANCE IMAGING BRAIN
     Dosage: TOTAL DAILY DOSE: 20 ML  UNIT DOSE: 20 ML
     Route: 042
     Dates: start: 20081114, end: 20081114
  2. LITHIUM CARBONATE [Concomitant]
  3. DEPAKOTE [Concomitant]
  4. RELPAX [Concomitant]

REACTIONS (6)
  - BREATH SOUNDS ABNORMAL [None]
  - DEPRESSED LEVEL OF CONSCIOUSNESS [None]
  - HYPERHIDROSIS [None]
  - NAUSEA [None]
  - URINARY INCONTINENCE [None]
  - VOMITING [None]
